FAERS Safety Report 17331797 (Version 2)
Quarter: 2020Q1

REPORT INFORMATION
  Report Type: Report from Study
  Country: US (occurrence: US)
  Receive Date: 20200127
  Receipt Date: 20200331
  Transmission Date: 20200409
  Serious: Yes (Death)
  Sender: FDA-Public Use
  Company Number: US-EXELIXIS-CABO-20026860

PATIENT
  Age: 17 Year
  Sex: Female

DRUGS (16)
  1. GABAPENTIN. [Concomitant]
     Active Substance: GABAPENTIN
  2. LIDOCAINE. [Concomitant]
     Active Substance: LIDOCAINE
  3. CYCLOBENZAPRIN [Concomitant]
     Active Substance: CYCLOBENZAPRINE
  4. MEGESTROL ACETATE. [Concomitant]
     Active Substance: MEGESTROL ACETATE
  5. SMZ-TMP DS [Concomitant]
     Active Substance: SULFAMETHOXAZOLE\TRIMETHOPRIM
  6. CELECOXIB. [Concomitant]
     Active Substance: CELECOXIB
  7. LISINOPRIL. [Concomitant]
     Active Substance: LISINOPRIL
  8. MORPHINE SULFATE. [Concomitant]
     Active Substance: MORPHINE SULFATE
  9. CLONIDINE. [Concomitant]
     Active Substance: CLONIDINE
  10. AMITRIPTYLINE HCL [Concomitant]
     Active Substance: AMITRIPTYLINE
  11. FLUCONAZOLE. [Concomitant]
     Active Substance: FLUCONAZOLE
  12. AMLODIPINE [Concomitant]
     Active Substance: AMLODIPINE BESYLATE
  13. NYSTATIN. [Concomitant]
     Active Substance: NYSTATIN
  14. CABOMETYX [Suspect]
     Active Substance: CABOZANTINIB S-MALATE
     Indication: EWING^S SARCOMA METASTATIC
     Dosage: 60 MG, QD
     Dates: start: 20191107, end: 20200108
  15. CYCLOPHOSPHAMIDE. [Concomitant]
     Active Substance: CYCLOPHOSPHAMIDE
  16. LORAZEPAM. [Concomitant]
     Active Substance: LORAZEPAM

REACTIONS (3)
  - Off label use [Unknown]
  - Septic shock [Fatal]
  - Malignant neoplasm progression [Unknown]

NARRATIVE: CASE EVENT DATE: 20200111
